FAERS Safety Report 4338223-2 (Version None)
Quarter: 2004Q2

REPORT INFORMATION
  Report Type: 
  Country: None (occurrence: None)
  Receive Date: 20040409
  Receipt Date: 20040401
  Transmission Date: 20050107
  Serious: Yes (Disabling)
  Sender: FDA-Public Use
  Company Number: 2004AP02086

PATIENT
  Age: 67 Year
  Sex: Female

DRUGS (1)
  1. XYLOCAINE [Suspect]
     Dates: start: 19830801

REACTIONS (1)
  - APALLIC SYNDROME [None]
